FAERS Safety Report 14508755 (Version 2)
Quarter: 2018Q1

REPORT INFORMATION
  Report Type: Spontaneous
  Country: JP (occurrence: JP)
  Receive Date: 20180209
  Receipt Date: 20180209
  Transmission Date: 20180509
  Serious: Yes (Other)
  Sender: FDA-Public Use
  Company Number: JP-009507513-1801JPN003144J

PATIENT
  Age: 75 Year
  Sex: Female

DRUGS (2)
  1. BELSOMRA [Suspect]
     Active Substance: SUVOREXANT
     Dosage: 15 MG, QD
     Route: 048
     Dates: start: 201801, end: 201801
  2. BELSOMRA [Suspect]
     Active Substance: SUVOREXANT
     Dosage: 30 MG, QD
     Route: 048
     Dates: start: 201801, end: 201801

REACTIONS (3)
  - Delirium [Recovered/Resolved]
  - Drug dose omission [Unknown]
  - Accidental overdose [Unknown]

NARRATIVE: CASE EVENT DATE: 201801
